FAERS Safety Report 8617847-8 (Version None)
Quarter: 2012Q3

REPORT INFORMATION
  Report Type: 
  Country: None (occurrence: None)
  Receive Date: 20120824
  Receipt Date: 20120214
  Transmission Date: 20120928
  Serious: No
  Sender: FDA-Public Use
  Company Number: US-ASTRAZENECA-2012SE10048

PATIENT
  Sex: Female

DRUGS (2)
  1. SYMBICORT [Suspect]
     Indication: ASTHMA
     Dosage: 160/4.5 MCG, TWO PUFFS, TWO TIMES A DAY
     Route: 055
  2. FLUTICASONE PROPIONATE [Concomitant]

REACTIONS (4)
  - MALAISE [None]
  - PEAK EXPIRATORY FLOW RATE DECREASED [None]
  - CIRCUMSTANCE OR INFORMATION CAPABLE OF LEADING TO MEDICATION ERROR [None]
  - DEPRESSED MOOD [None]
